FAERS Safety Report 6588650-8 (Version None)
Quarter: 2010Q1

REPORT INFORMATION
  Report Type: 
  Country: None (occurrence: None)
  Receive Date: 20100218
  Receipt Date: 20091125
  Transmission Date: 20100710
  Serious: No
  Sender: FDA-Public Use
  Company Number: US-ALLERGAN-0916412US

PATIENT
  Sex: Male

DRUGS (6)
  1. BOTOX COSMETIC [Suspect]
     Indication: SKIN WRINKLING
     Dosage: 28 UNITS, SINGLE
     Route: 030
     Dates: start: 20090901, end: 20090901
  2. BOTOX COSMETIC [Suspect]
     Dosage: 8 UNK, UNK
     Route: 030
     Dates: start: 20090918, end: 20090918
  3. BOTOX COSMETIC [Suspect]
     Dosage: 8 UNK, UNK
     Route: 030
     Dates: start: 20091006, end: 20091006
  4. BOTOX COSMETIC [Suspect]
     Dosage: 16 UNK, UNK
     Route: 030
     Dates: start: 20091015, end: 20091015
  5. BOTOX COSMETIC [Suspect]
     Dosage: 10 UNK, UNK
     Route: 030
     Dates: start: 20091029, end: 20091029
  6. BOTOX COSMETIC [Suspect]
     Dosage: 22 UNK, UNK
     Route: 030
     Dates: start: 20091119, end: 20091119

REACTIONS (1)
  - DRUG INEFFECTIVE [None]
